FAERS Safety Report 5131749-3 (Version None)
Quarter: 2006Q4

REPORT INFORMATION
  Report Type: 
  Country: None (occurrence: None)
  Receive Date: 20061016
  Receipt Date: 20060928
  Transmission Date: 20070319
  Serious: Yes (Hospitalization)
  Sender: FDA-Public Use
  Company Number: DSA_28694_2006

PATIENT
  Age: 37 Year
  Sex: Male

DRUGS (4)
  1. TAVOR [Suspect]
     Dosage: 5 MG ONCE PO
     Route: 048
     Dates: start: 20060910, end: 20060910
  2. DIAZEPAM [Suspect]
     Dosage: 5 MG OCNE PO
     Route: 048
     Dates: start: 20060910, end: 20060910
  3. RISPERDAL [Suspect]
     Dosage: 2 MG ONCE PO
     Route: 048
     Dates: start: 20060910, end: 20060910
  4. ALCOHOL [Suspect]
     Dosage: DF ONCE PO
     Route: 048
     Dates: start: 20060910, end: 20060910

REACTIONS (5)
  - BLOOD CREATINE PHOSPHOKINASE INCREASED [None]
  - OVERDOSE [None]
  - RESPIRATORY FAILURE [None]
  - SOMNOLENCE [None]
  - SUICIDE ATTEMPT [None]
